FAERS Safety Report 5321559-6 (Version None)
Quarter: 2007Q2

REPORT INFORMATION
  Report Type: 
  Country: None (occurrence: None)
  Receive Date: 20070510
  Receipt Date: 20070502
  Transmission Date: 20071010
  Serious: Yes (Other)
  Sender: FDA-Public Use
  Company Number: US-AMGEN-US222753

PATIENT
  Sex: Female
  Weight: 59 kg

DRUGS (2)
  1. ARANESP [Suspect]
     Indication: ANAEMIA OF MALIGNANT DISEASE
     Route: 058
     Dates: start: 20070201
  2. LEUKERAN [Concomitant]
     Dates: start: 20060601

REACTIONS (5)
  - CHILLS [None]
  - EYE SWELLING [None]
  - HAEMOGLOBIN DECREASED [None]
  - PYREXIA [None]
  - TRANSFUSION REACTION [None]
